FAERS Safety Report 15792707 (Version 3)
Quarter: 2019Q2

REPORT INFORMATION
  Report Type: Spontaneous
  Country: US (occurrence: US)
  Receive Date: 20190107
  Receipt Date: 20190412
  Transmission Date: 20190711
  Serious: No
  Sender: FDA-Public Use
  Company Number: US-TEVA-2019-US-995680

PATIENT
  Sex: Female

DRUGS (1)
  1. BUPROPION TEVA [Suspect]
     Active Substance: BUPROPION
     Route: 065

REACTIONS (1)
  - Feeling abnormal [Recovered/Resolved]
